FAERS Safety Report 24083283 (Version 1)
Quarter: 2024Q3

REPORT INFORMATION
  Report Type: Spontaneous
  Country: ZA (occurrence: ZA)
  Receive Date: 20240712
  Receipt Date: 20240712
  Transmission Date: 20241016
  Serious: Yes (Hospitalization)
  Sender: MACLEODS
  Company Number: ZA-MACLEODS PHARMA-MAC2024048102

PATIENT

DRUGS (16)
  1. HYDROCHLOROTHIAZIDE\VALSARTAN [Suspect]
     Active Substance: HYDROCHLOROTHIAZIDE\VALSARTAN
     Indication: Hypertension
     Dosage: ONE TABLET IN THE MORNING
     Route: 048
  2. ATORVASTATIN CALCIUM [Suspect]
     Active Substance: ATORVASTATIN CALCIUM
     Indication: Blood cholesterol
     Dosage: ONE TABLET AT NIGHT
     Route: 048
  3. ECOTRIN [Suspect]
     Active Substance: ASPIRIN
     Indication: Anticoagulant therapy
     Dosage: ONE TABLET ONCE DAILY
     Route: 048
  4. LEVOMEFOLIC ACID [Suspect]
     Active Substance: LEVOMEFOLIC ACID
     Indication: Coronary artery disease
     Dosage: ONE TABLET ONCE DAILY
     Route: 048
  5. PRAMIPEXOLE DIHYDROCHLORIDE [Suspect]
     Active Substance: PRAMIPEXOLE DIHYDROCHLORIDE
     Indication: Parkinson^s disease
     Dosage: TWO TABLETS AT NIGHT
     Route: 048
  6. DORMONOCT [Suspect]
     Active Substance: LOPRAZOLAM
     Indication: Insomnia
     Dosage: ONE TABLET AT NIGHT
     Route: 048
  7. EUTHYROX [Suspect]
     Active Substance: LEVOTHYROXINE SODIUM
     Indication: Hypothyroidism
     Dosage: ONE TABLET IN THE MORNING
     Route: 048
  8. LIOTHYRONINE SODIUM [Suspect]
     Active Substance: LIOTHYRONINE SODIUM
     Indication: Hypothyroidism
     Dosage: ONE TABLET IN THE MORNING
     Route: 048
  9. METFORMIN HYDROCHLORIDE [Suspect]
     Active Substance: METFORMIN HYDROCHLORIDE
     Indication: Diabetes mellitus
     Dosage: ONE TABLET AT NIGHT
     Route: 048
  10. ERGOCALCIFEROL [Suspect]
     Active Substance: ERGOCALCIFEROL
     Indication: Product used for unknown indication
     Dosage: ONE TABLET ONCE A WEEK
     Route: 048
  11. AMOXICILLIN\CLAVULANIC ACID [Suspect]
     Active Substance: AMOXICILLIN\CLAVULANIC ACID
     Indication: Product used for unknown indication
     Dosage: ONE TABLET TWICE A DAY
     Route: 048
  12. CHLORPHENIRAMINE MALEATE [Suspect]
     Active Substance: CHLORPHENIRAMINE MALEATE
     Indication: Hypersensitivity
     Dosage: ONE TABLET TWICE A DAY
     Route: 048
  13. ACETYLCYSTEINE [Suspect]
     Active Substance: ACETYLCYSTEINE
     Indication: Product used for unknown indication
     Dosage: AS PER PACKAGE INSERT
     Route: 048
  14. ROBAXIN [Suspect]
     Active Substance: METHOCARBAMOL
     Indication: Product used for unknown indication
     Dosage: MG ONE TABLET THREE TIMES A DAY
     Route: 048
  15. ETORICOXIB [Suspect]
     Active Substance: ETORICOXIB
     Indication: Product used for unknown indication
     Dosage: ONE TABLET ONCE DAILY
     Route: 048
  16. HYDROCHLOROTHIAZIDE\VALSARTAN [Suspect]
     Active Substance: HYDROCHLOROTHIAZIDE\VALSARTAN
     Indication: Product used for unknown indication
     Dosage: ONE TABLET IN THE MORNING
     Route: 048

REACTIONS (1)
  - Hospitalisation [Recovered/Resolved]
